FAERS Safety Report 7751174-6 (Version None)
Quarter: 2011Q3

REPORT INFORMATION
  Report Type: 
  Country: None (occurrence: None)
  Receive Date: 20110914
  Receipt Date: 20070118
  Transmission Date: 20111222
  Serious: Yes (Other)
  Sender: FDA-Public Use
  Company Number: PHHY2007NL03751

PATIENT
  Sex: Female

DRUGS (2)
  1. SANDOSTATIN LAR [Suspect]
     Indication: CARCINOID TUMOUR
     Dosage: 30 MG, ONCE PER 4 WEEKS
     Dates: start: 20050704
  2. SANDOSTATIN LAR [Suspect]
     Dosage: 30 MG, ONCE PER 4 WEEKS
     Dates: start: 20061220

REACTIONS (1)
  - TERMINAL STATE [None]
